FAERS Safety Report 15279992 (Version 3)
Quarter: 2018Q4

REPORT INFORMATION
  Report Type: Report from Study
  Country: US (occurrence: MX)
  Receive Date: 20180815
  Receipt Date: 20181015
  Transmission Date: 20190204
  Serious: Yes (Death, Other)
  Sender: FDA-Public Use
  Company Number: US-SUNOVION-2018SUN003159

PATIENT
  Sex: Male
  Weight: 50 kg

DRUGS (4)
  1. INDACATEROL AND GLYCOPYRROLATE [Suspect]
     Active Substance: GLYCOPYRROLATE\INDACATEROL MALEATE
     Indication: CHRONIC OBSTRUCTIVE PULMONARY DISEASE
  2. OXYGEN. [Concomitant]
     Active Substance: OXYGEN
     Indication: EMPHYSEMA
     Dosage: UNK (24 HOURS OF THE DAY)
     Route: 055
     Dates: start: 20180213
  3. INDACATEROL AND GLYCOPYRROLATE [Suspect]
     Active Substance: GLYCOPYRROLATE\INDACATEROL MALEATE
     Indication: EMPHYSEMA
     Dosage: 1 DF, (50 UG GLYCOPYRRONIUM BROMIDE, 110 UG INDACATEROL), QN (EVERY NIGHT)
     Route: 055
     Dates: start: 20180213
  4. COMBIVENT [Concomitant]
     Active Substance: ALBUTEROL SULFATE\IPRATROPIUM BROMIDE
     Indication: EMPHYSEMA
     Dosage: 3 DF, QD
     Route: 055
     Dates: start: 20180213

REACTIONS (2)
  - Emphysema [Fatal]
  - Cardiac failure [Fatal]
